FAERS Safety Report 9791426 (Version 3)
Quarter: 2014Q1

REPORT INFORMATION
  Report Type: Spontaneous
  Country: ES (occurrence: ES)
  Receive Date: 20140101
  Receipt Date: 20140110
  Transmission Date: 20141002
  Serious: No
  Sender: FDA-Public Use
  Company Number: PHHY2013ES034734

PATIENT
  Age: 41 Year
  Sex: Male

DRUGS (3)
  1. TASIGNA [Suspect]
     Indication: CHRONIC MYELOID LEUKAEMIA
     Dosage: 600 MG, BID
     Route: 048
     Dates: start: 20101001, end: 20130127
  2. ALLOPURINOL [Concomitant]
     Dosage: UNK UKN, UNK
  3. ATORVASTATIN [Concomitant]
     Dosage: UNK UKN, UNK

REACTIONS (1)
  - Drug ineffective [Unknown]
